FAERS Safety Report 13232574 (Version 2)
Quarter: 2017Q1

REPORT INFORMATION
  Report Type: Spontaneous
  Country: US (occurrence: US)
  Receive Date: 20170214
  Receipt Date: 20170221
  Transmission Date: 20170428
  Serious: Yes (Death, Hospitalization)
  Sender: FDA-Public Use
  Company Number: US-BAUSCH-BL-2017-003650

PATIENT
  Age: 53 Year
  Sex: Male

DRUGS (2)
  1. XIFAXAN [Suspect]
     Active Substance: RIFAXIMIN
     Route: 065
     Dates: start: 20170130, end: 20170130
  2. XIFAXAN [Suspect]
     Active Substance: RIFAXIMIN
     Indication: HEPATIC CIRRHOSIS
     Route: 065
     Dates: start: 20170129

REACTIONS (6)
  - Hyperkalaemia [Fatal]
  - Confusional state [Unknown]
  - Renal failure [Fatal]
  - Dysstasia [Unknown]
  - Cardiac arrest [Fatal]
  - Asthenia [Unknown]

NARRATIVE: CASE EVENT DATE: 20170130
